FAERS Safety Report 22216757 (Version 2)
Quarter: 2023Q2

REPORT INFORMATION
  Report Type: Spontaneous
  Country: US (occurrence: US)
  Receive Date: 20230417
  Receipt Date: 20230601
  Transmission Date: 20230722
  Serious: No
  Sender: FDA-Public Use
  Company Number: US-BRISTOL-MYERS SQUIBB COMPANY-2023-054089

PATIENT
  Age: 71 Year
  Sex: Male
  Weight: 80 kg

DRUGS (1)
  1. REVLIMID [Suspect]
     Active Substance: LENALIDOMIDE
     Indication: Plasma cell myeloma
     Dosage: DOSE : 5 MG;     FREQ : ONE EVERY DAY 28 DAYS?5MG DAILY FOR 3 WEEKS FOLLOWED BY 1 WEEK NOW (CYCLE CH
     Route: 048

REACTIONS (3)
  - Rash [Recovered/Resolved]
  - Pruritus [Unknown]
  - Off label use [Unknown]
